FAERS Safety Report 5399696-X (Version None)
Quarter: 2007Q3

REPORT INFORMATION
  Report Type: 
  Country: None (occurrence: None)
  Receive Date: 20070727
  Receipt Date: 20070720
  Transmission Date: 20080115
  Serious: Yes (Other)
  Sender: FDA-Public Use
  Company Number: JP-PFIZER INC-2007060015

PATIENT
  Age: 28 Year
  Sex: Female

DRUGS (2)
  1. ZOLOFT [Suspect]
  2. ETHYL LOFLAZEPATE [Concomitant]

REACTIONS (2)
  - FORMICATION [None]
  - SUICIDAL BEHAVIOUR [None]
